FAERS Safety Report 8967726 (Version 1)
Quarter: 2012Q4

REPORT INFORMATION
  Report Type: Spontaneous
  Country: JP (occurrence: None)
  Receive Date: 20121207
  Receipt Date: 20121207
  Transmission Date: 20130627
  Serious: Yes (Other)
  Sender: FDA-Public Use
  Company Number: 2012P1066107

PATIENT
  Age: 89 Year
  Sex: Female

DRUGS (3)
  1. ETHAMBUTOL [Suspect]
     Indication: TUBERCULOUS PERITONITIS
  2. RIFAMPIN [Suspect]
     Indication: TUBERCULOUS PERITONITIS
  3. ISONIAZID [Suspect]
     Indication: TUBERCULOUS PERITONITIS

REACTIONS (3)
  - Abdominal pain lower [None]
  - Vomiting [None]
  - Ascites [None]
